FAERS Safety Report 11335761 (Version 2)
Quarter: 2015Q3

REPORT INFORMATION
  Report Type: Spontaneous
  Country: US (occurrence: US)
  Receive Date: 20150804
  Receipt Date: 20150818
  Transmission Date: 20151125
  Serious: Yes (Other)
  Sender: FDA-Public Use
  Company Number: US-UCBSA-2015024254

PATIENT
  Age: 54 Year
  Sex: Male

DRUGS (1)
  1. KEPPRA XR [Suspect]
     Active Substance: LEVETIRACETAM
     Indication: SEIZURE
     Dosage: 500 MG/4 TABS

REACTIONS (2)
  - Malaise [Not Recovered/Not Resolved]
  - Colon cancer stage III [Not Recovered/Not Resolved]

NARRATIVE: CASE EVENT DATE: 201403
